FAERS Safety Report 14272542 (Version 1)
Quarter: 2017Q4

REPORT INFORMATION
  Report Type: Spontaneous
  Country: US (occurrence: US)
  Receive Date: 20171211
  Receipt Date: 20171211
  Transmission Date: 20180321
  Serious: Yes (Other)
  Sender: FDA-Public Use
  Company Number: US-OTSUKA-DJ20112168

PATIENT

DRUGS (10)
  1. DITROPAN [Concomitant]
     Active Substance: OXYBUTYNIN CHLORIDE
     Indication: URINARY INCONTINENCE
     Route: 065
  2. FISH OIL [Concomitant]
     Active Substance: FISH OIL
     Indication: PRODUCT USED FOR UNKNOWN INDICATION
     Route: 065
  3. ABILIFY [Suspect]
     Active Substance: ARIPIPRAZOLE
     Indication: BIPOLAR I DISORDER
     Route: 048
     Dates: start: 200205, end: 201104
  4. ABILIFY [Suspect]
     Active Substance: ARIPIPRAZOLE
     Indication: BIPOLAR DISORDER
  5. DEPO-PROVERA [Concomitant]
     Active Substance: MEDROXYPROGESTERONE ACETATE
     Indication: PRODUCT USED FOR UNKNOWN INDICATION
     Route: 051
     Dates: end: 200406
  6. KLONOPIN [Concomitant]
     Active Substance: CLONAZEPAM
     Route: 065
  7. CALCIUM [Concomitant]
     Active Substance: CALCIUM
     Indication: PRODUCT USED FOR UNKNOWN INDICATION
     Route: 065
  8. ZANAFLEX [Concomitant]
     Active Substance: TIZANIDINE HYDROCHLORIDE
     Indication: MUSCLE SPASMS
     Route: 065
  9. TYLENOL [Concomitant]
     Active Substance: ACETAMINOPHEN
     Indication: PRODUCT USED FOR UNKNOWN INDICATION
     Route: 065
  10. CLONAZEPAM. [Concomitant]
     Active Substance: CLONAZEPAM
     Indication: PRODUCT USED FOR UNKNOWN INDICATION
     Dosage: AS NEEDED
     Route: 065

REACTIONS (25)
  - Diabetes mellitus [Unknown]
  - Joint injury [Unknown]
  - Dysmenorrhoea [Unknown]
  - Constipation [Unknown]
  - Weight increased [Unknown]
  - Bladder spasm [Unknown]
  - Blood prolactin increased [Unknown]
  - Pregnancy [Unknown]
  - Hypotension [Unknown]
  - Musculoskeletal pain [Unknown]
  - Atrial fibrillation [Unknown]
  - Urinary incontinence [Unknown]
  - Pollakiuria [Unknown]
  - Musculoskeletal stiffness [Unknown]
  - Menorrhagia [Unknown]
  - Restless legs syndrome [Unknown]
  - Dry mouth [Unknown]
  - Vertigo [Unknown]
  - Contusion [Unknown]
  - Hypoglycaemia [Unknown]
  - Nerve compression [Unknown]
  - Somnolence [Unknown]
  - Blood cholesterol increased [Unknown]
  - Patella fracture [Unknown]
  - Hypertension [Unknown]

NARRATIVE: CASE EVENT DATE: 2000
